FAERS Safety Report 6552061-1 (Version None)
Quarter: 2010Q1

REPORT INFORMATION
  Report Type: 
  Country: None (occurrence: None)
  Receive Date: 20100120
  Receipt Date: 20100107
  Transmission Date: 20100710
  Serious: Yes (Death)
  Sender: FDA-Public Use
  Company Number: A-NJ2009-32856

PATIENT
  Age: 86 Year
  Sex: Female

DRUGS (2)
  1. VENTAVIS [Suspect]
     Indication: PULMONARY ARTERIAL HYPERTENSION
     Dosage: RESPIRATORY
     Route: 055
     Dates: start: 20090806
  2. REVATIO [Concomitant]

REACTIONS (1)
  - DEATH [None]
